FAERS Safety Report 5262971-3 (Version None)
Quarter: 2007Q1

REPORT INFORMATION
  Report Type: 
  Country: None (occurrence: None)
  Receive Date: 20070308
  Receipt Date: 20070221
  Transmission Date: 20070707
  Serious: Yes (Death)
  Sender: FDA-Public Use
  Company Number: 153219ISR

PATIENT
  Age: 16 Year
  Sex: Female

DRUGS (7)
  1. METHOTREXATE [Suspect]
  2. VINCRISTINE [Suspect]
  3. ETOPOSIDE [Suspect]
  4. CISPLATIN [Suspect]
  5. CARBOPLATIN [Suspect]
  6. CYCLOPHOSPHAMIDE [Suspect]
  7. CYTARABINE [Suspect]

REACTIONS (2)
  - GLIOMA [None]
  - TREATMENT RELATED SECONDARY MALIGNANCY [None]
